FAERS Safety Report 23557952 (Version 3)
Quarter: 2025Q1

REPORT INFORMATION
  Report Type: Spontaneous
  Country: EG (occurrence: EG)
  Receive Date: 20240223
  Receipt Date: 20250317
  Transmission Date: 20250409
  Serious: Yes (Other)
  Sender: MACLEODS
  Company Number: None

PATIENT

DRUGS (1)
  1. TRAMADOL [Suspect]
     Active Substance: TRAMADOL
     Indication: Arthralgia
     Dosage: 100 MILLIGRAM, BID (ORAL EXTENDED-RELEASE TRAMADOL)
     Route: 048

REACTIONS (1)
  - Hiccups [Recovered/Resolved]
